FAERS Safety Report 24523878 (Version 2)
Quarter: 2024Q4

REPORT INFORMATION
  Report Type: Spontaneous
  Country: US (occurrence: US)
  Receive Date: 20241018
  Receipt Date: 20241115
  Transmission Date: 20250115
  Serious: Yes (Hospitalization)
  Sender: RIGEL PHARMACEUTICALS
  Company Number: US-RIGEL Pharmaceuticals. INC- 20240900101

PATIENT
  Sex: Female

DRUGS (1)
  1. TAVALISSE [Suspect]
     Active Substance: FOSTAMATINIB
     Indication: Immune thrombocytopenia
     Dosage: 100 MG, BID
     Route: 048
     Dates: start: 20240829

REACTIONS (3)
  - Platelet count decreased [Unknown]
  - Platelet count [Recovering/Resolving]
  - Drug ineffective [Unknown]

NARRATIVE: CASE EVENT DATE: 20240101
